FAERS Safety Report 18864994 (Version 1)
Quarter: 2021Q1

REPORT INFORMATION
  Report Type: Spontaneous
  Country: US (occurrence: US)
  Receive Date: 20210208
  Receipt Date: 20210208
  Transmission Date: 20210420
  Serious: No
  Sender: FDA-Public Use
  Company Number: None

PATIENT
  Age: 62 Year
  Sex: Male
  Weight: 92 kg

DRUGS (1)
  1. SUTENT [Suspect]
     Active Substance: SUNITINIB MALATE
     Indication: HEPATIC NEOPLASM
     Route: 048
     Dates: start: 20201229, end: 20210207

REACTIONS (5)
  - Therapy interrupted [None]
  - Haemoptysis [None]
  - Hypoglycaemia [None]
  - Abdominal distension [None]
  - Restless legs syndrome [None]

NARRATIVE: CASE EVENT DATE: 20210207
